FAERS Safety Report 8085502-1 (Version None)
Quarter: 2012Q1

REPORT INFORMATION
  Report Type: 
  Country: None (occurrence: None)
  Receive Date: 20120128
  Receipt Date: 20110602
  Transmission Date: 20120608
  Serious: No
  Sender: FDA-Public Use
  Company Number: US-ABBOTT-11P-163-0710620-00

PATIENT
  Sex: Female
  Weight: 97.61 kg

DRUGS (11)
  1. GELNIQUI GEL 10% [Concomitant]
     Indication: CYSTITIS INTERSTITIAL
     Dosage: DAILY
  2. ASPIRIN [Concomitant]
     Indication: PRODUCT USED FOR UNKNOWN INDICATION
  3. HUMIRA [Suspect]
     Indication: OSTEOARTHRITIS
  4. Q10 [Concomitant]
     Indication: PRODUCT USED FOR UNKNOWN INDICATION
  5. PERIDIUM [Concomitant]
     Indication: CYSTITIS INTERSTITIAL
     Dosage: AS NEEDED
  6. SYNTHROID [Concomitant]
     Indication: HYPOTHYROIDISM
  7. HUMIRA [Suspect]
  8. VITAMIN D [Concomitant]
     Indication: VITAMIN SUPPLEMENTATION
     Dosage: MONTHLY
     Route: 048
  9. VITAMIN B-12 [Concomitant]
     Indication: PRODUCT USED FOR UNKNOWN INDICATION
     Dosage: MONTHLY
  10. HUMIRA [Suspect]
     Indication: PSORIASIS
     Dates: start: 20090101
  11. CRESTOR [Concomitant]
     Indication: INFLAMMATION

REACTIONS (10)
  - INCORRECT DOSE ADMINISTERED [None]
  - DEVICE MALFUNCTION [None]
  - INJECTION SITE HAEMORRHAGE [None]
  - PSORIASIS [None]
  - INJECTION SITE PAPULE [None]
  - INJECTION SITE MACULE [None]
  - INJECTION SITE PAIN [None]
  - CYSTITIS INTERSTITIAL [None]
  - ACNE [None]
  - INJECTION SITE URTICARIA [None]
